FAERS Safety Report 15245710 (Version 1)
Quarter: 2018Q3

REPORT INFORMATION
  Report Type: Spontaneous
  Country: CA (occurrence: CA)
  Receive Date: 20180806
  Receipt Date: 20180806
  Transmission Date: 20181010
  Serious: Yes (Hospitalization, Other)
  Sender: FDA-Public Use
  Company Number: PHHY2018CA061112

PATIENT
  Age: 82 Year
  Sex: Female

DRUGS (14)
  1. GLYCOPYRRONIUM BROMIDE [Suspect]
     Active Substance: GLYCOPYRRONIUM
     Indication: ASTHMA
     Dosage: UNK UNK, QMO
     Route: 065
  2. MOMETASONE FUROATE. [Suspect]
     Active Substance: MOMETASONE FUROATE
     Indication: ASTHMA
     Dosage: UNK UNK, QMO
     Route: 065
  3. PREDNISONE. [Suspect]
     Active Substance: PREDNISONE
     Dosage: UNK
     Route: 065
  4. AVAMYS [Suspect]
     Active Substance: FLUTICASONE FUROATE
     Indication: PRODUCT USED FOR UNKNOWN INDICATION
     Route: 065
  5. MONTELUKAST SODIUM. [Suspect]
     Active Substance: MONTELUKAST SODIUM
     Indication: ASTHMA
     Dosage: 1 MG, QD
     Route: 065
  6. SALBUTAMOL SULFATE [Suspect]
     Active Substance: ALBUTEROL SULFATE
     Indication: ASTHMA
     Route: 065
  7. ADVAIR HFA [Suspect]
     Active Substance: FLUTICASONE PROPIONATE\SALMETEROL XINAFOATE
     Indication: ASTHMA
     Dosage: 2 DF, QD
     Route: 055
  8. NUCALA [Concomitant]
     Active Substance: MEPOLIZUMAB
     Dosage: 100 MG, UNK
     Route: 042
  9. NUCALA [Concomitant]
     Active Substance: MEPOLIZUMAB
     Indication: ASTHMA
     Dosage: 100 MG, UNK
     Route: 042
  10. NUCALA [Concomitant]
     Active Substance: MEPOLIZUMAB
     Dosage: 100 MG, UNK
     Route: 042
  11. PREDNISONE. [Suspect]
     Active Substance: PREDNISONE
     Route: 065
  12. PREDNISONE. [Suspect]
     Active Substance: PREDNISONE
     Dosage: UNK
     Route: 065
  13. PREDNISONE. [Suspect]
     Active Substance: PREDNISONE
     Dosage: 5 MG, QD
     Route: 065
  14. PREDNISONE. [Suspect]
     Active Substance: PREDNISONE
     Indication: PRODUCT USED FOR UNKNOWN INDICATION
     Route: 065

REACTIONS (8)
  - Autoimmune haemolytic anaemia [Not Recovered/Not Resolved]
  - Rhinorrhoea [Not Recovered/Not Resolved]
  - Asthma [Not Recovered/Not Resolved]
  - Hip fracture [Not Recovered/Not Resolved]
  - Increased upper airway secretion [Not Recovered/Not Resolved]
  - Blood test abnormal [Not Recovered/Not Resolved]
  - Dyspepsia [Not Recovered/Not Resolved]
  - Gastrooesophageal reflux disease [Not Recovered/Not Resolved]
